FAERS Safety Report 5279876-4 (Version None)
Quarter: 2007Q1

REPORT INFORMATION
  Report Type: 
  Country: None (occurrence: None)
  Receive Date: 20061215
  Receipt Date: 20060417
  Transmission Date: 20070707
  Serious: Yes (Other)
  Sender: FDA-Public Use
  Company Number: HQWYE852918APR06

PATIENT
  Age: 49 Year
  Sex: Female

DRUGS (2)
  1. EFFEXOR XR [Suspect]
     Dosage: 300 MG 1X PER 1 DAY, ORAL
     Route: 048
     Dates: start: 20060301
  2. XANAX [Concomitant]

REACTIONS (4)
  - FEELING ABNORMAL [None]
  - LIBIDO DECREASED [None]
  - SUICIDAL IDEATION [None]
  - VISION BLURRED [None]
